FAERS Safety Report 7214935-8 (Version None)
Quarter: 2011Q1

REPORT INFORMATION
  Report Type: 
  Country: None (occurrence: None)
  Receive Date: 20110107
  Receipt Date: 20100524
  Transmission Date: 20110831
  Serious: No
  Sender: FDA-Public Use
  Company Number: A0861059A

PATIENT
  Age: 73 Year
  Sex: Male

DRUGS (4)
  1. SIMVASTATIN [Concomitant]
  2. METFORMIN [Concomitant]
  3. GLYBURIDE [Concomitant]
  4. LOVAZA [Suspect]
     Route: 048
     Dates: start: 20100201

REACTIONS (2)
  - WEIGHT DECREASED [None]
  - DYSGEUSIA [None]
